FAERS Safety Report 9828914 (Version 2)
Quarter: 2014Q1

REPORT INFORMATION
  Report Type: Spontaneous
  Country: SE (occurrence: SE)
  Receive Date: 20140118
  Receipt Date: 20140331
  Transmission Date: 20141002
  Serious: Yes (Hospitalization, Disabling)
  Sender: FDA-Public Use
  Company Number: SE-ABBVIE-14P-150-1188099-00

PATIENT
  Age: 13 Year
  Sex: Female

DRUGS (2)
  1. HUMIRA [Suspect]
     Indication: CROHN^S DISEASE
     Route: 058
     Dates: start: 20130327
  2. PREDNISOLONE [Suspect]
     Indication: CROHN^S DISEASE
     Dosage: DISCONTINUATION SCHEME ^3 TABLETS INITIAL^
     Route: 048
     Dates: start: 20130201, end: 20130415

REACTIONS (1)
  - Congenital foot malformation [Not Recovered/Not Resolved]
